FAERS Safety Report 6188077-7 (Version None)
Quarter: 2009Q2

REPORT INFORMATION
  Report Type: 
  Country: None (occurrence: None)
  Receive Date: 20090508
  Receipt Date: 20090423
  Transmission Date: 20091009
  Serious: Yes (Hospitalization)
  Sender: FDA-Public Use
  Company Number: 000338

PATIENT
  Age: 81 Year
  Sex: Male

DRUGS (8)
  1. ROTIGOTINE (ROTIGOTINE) (LOT#S  091807070003) [Suspect]
     Indication: PARKINSON'S DISEASE
     Dosage: TRANSDERMAL PATCH, 6 MG QD, TRANSDERMAL
     Route: 062
     Dates: start: 20080228, end: 20090204
  2. ACETAMINOPHEN [Concomitant]
  3. CARTIA  /00002701/ (ACETYLSALICYLIC ACID) [Concomitant]
  4. CITALOPRAM HYDROBROMIDE [Concomitant]
  5. DOMPERIDONE(DOMPERIDONE) [Concomitant]
  6. GAVISCON [Concomitant]
  7. SIMVASTATIN [Concomitant]
  8. SINEMET [Concomitant]

REACTIONS (24)
  - AORTIC VALVE INCOMPETENCE [None]
  - ATRIAL FIBRILLATION [None]
  - ATRIOVENTRICULAR BLOCK FIRST DEGREE [None]
  - BLOOD GLUCOSE INCREASED [None]
  - BLOOD PRESSURE INCREASED [None]
  - BLOOD UREA INCREASED [None]
  - BURSITIS [None]
  - CARDIAC MURMUR [None]
  - CHEST PAIN [None]
  - DIASTOLIC DYSFUNCTION [None]
  - DYSPNOEA [None]
  - ELECTROCARDIOGRAM REPOLARISATION ABNORMALITY [None]
  - HAEMATOCRIT DECREASED [None]
  - HAEMOGLOBIN DECREASED [None]
  - HEART RATE IRREGULAR [None]
  - HYPERHIDROSIS [None]
  - HYPERTENSION [None]
  - LEFT VENTRICULAR HYPERTROPHY [None]
  - MITRAL VALVE INCOMPETENCE [None]
  - PALLOR [None]
  - PALPITATIONS [None]
  - SINUS BRADYCARDIA [None]
  - TENDERNESS [None]
  - VITAMIN B12 INCREASED [None]
